FAERS Safety Report 5929860-X (Version None)
Quarter: 2008Q4

REPORT INFORMATION
  Report Type: 
  Country: None (occurrence: None)
  Receive Date: 20081024
  Receipt Date: 20081014
  Transmission Date: 20090506
  Serious: Yes (Death)
  Sender: FDA-Public Use
  Company Number: US-ROCHE-591741

PATIENT
  Sex: Female
  Weight: 52.5 kg

DRUGS (19)
  1. METHOXY POLYETHYLENE GLYCOL-EPOETIN BETA [Suspect]
     Dosage: DOSAGE FORM REPORTED AS SYRINGE
     Route: 042
     Dates: start: 20081009
  2. METHOXY POLYETHYLENE GLYCOL-EPOETIN BETA [Suspect]
     Route: 042
  3. DIATX [Concomitant]
     Dates: start: 20020725
  4. MINOXIDIL [Concomitant]
     Dates: start: 20060815
  5. HEPARIN [Concomitant]
     Dates: start: 20070922
  6. SYNTHROID [Concomitant]
     Dates: start: 20080124
  7. CLONIDINE [Concomitant]
     Dates: start: 20080125
  8. LOMOTIL [Concomitant]
     Dates: start: 20080125
  9. AMIODARONE HCL [Concomitant]
     Dates: start: 20080125
  10. ZOCOR [Concomitant]
     Dates: start: 20080204
  11. LOPRESSOR [Concomitant]
     Dates: start: 20080212
  12. PRILOSEC [Concomitant]
     Dates: start: 20080423
  13. LORTAB [Concomitant]
     Dates: start: 20080502
  14. ATARAX [Concomitant]
     Dates: start: 20080502
  15. NORVASC [Concomitant]
     Dates: start: 20080513
  16. NEURONTIN [Concomitant]
     Dates: start: 20080612
  17. PREMARIN [Concomitant]
     Dates: start: 20080624
  18. RENAGEL [Concomitant]
     Dates: start: 20080701
  19. ZEMPLAR [Concomitant]
     Dates: start: 20080919

REACTIONS (1)
  - DEATH [None]
